FAERS Safety Report 20080067 (Version 1)
Quarter: 2021Q4

REPORT INFORMATION
  Report Type: Spontaneous
  Country: US (occurrence: US)
  Receive Date: 20211117
  Receipt Date: 20211117
  Transmission Date: 20220303
  Serious: No
  Sender: FDA-Public Use
  Company Number: US-ALVOGEN-2020-ALVOGEN-115213

PATIENT
  Sex: Male

DRUGS (2)
  1. LISINOPRIL [Suspect]
     Active Substance: LISINOPRIL
     Indication: Product used for unknown indication
  2. JYNARQUE [Suspect]
     Active Substance: TOLVAPTAN
     Indication: Congenital cystic kidney disease
     Dates: start: 20180809

REACTIONS (4)
  - Abdominal discomfort [Unknown]
  - Hypotension [Unknown]
  - Blood potassium increased [Not Recovered/Not Resolved]
  - Headache [Unknown]

NARRATIVE: CASE EVENT DATE: 20200203
